FAERS Safety Report 18177638 (Version 1)
Quarter: 2020Q3

REPORT INFORMATION
  Report Type: Spontaneous
  Country: US (occurrence: US)
  Receive Date: 20200820
  Receipt Date: 20200820
  Transmission Date: 20201103
  Serious: Yes (Life-Threatening, Hospitalization, Other)
  Sender: FDA-Public Use
  Company Number: US-MYLANLABS-2020M1072609

PATIENT
  Age: 57 Year
  Sex: Female

DRUGS (2)
  1. APIXABAN [Suspect]
     Active Substance: APIXABAN
     Indication: ANTICOAGULANT THERAPY
  2. APIXABAN [Suspect]
     Active Substance: APIXABAN
     Indication: PULMONARY EMBOLISM
     Route: 048

REACTIONS (6)
  - Shock [Recovering/Resolving]
  - Acute respiratory distress syndrome [Recovering/Resolving]
  - Urine output decreased [Recovering/Resolving]
  - Splenic haemorrhage [Recovering/Resolving]
  - Haemoperitoneum [Recovering/Resolving]
  - Subcapsular splenic haematoma [Recovering/Resolving]
